FAERS Safety Report 5254608-4 (Version None)
Quarter: 2007Q1

REPORT INFORMATION
  Report Type: 
  Country: None (occurrence: None)
  Receive Date: 20070302
  Receipt Date: 20070220
  Transmission Date: 20070707
  Serious: Yes (Hospitalization)
  Sender: FDA-Public Use
  Company Number: FR-PFIZER INC-2007014311

PATIENT
  Age: 83 Year
  Sex: Female

DRUGS (9)
  1. LYRICA [Suspect]
     Route: 048
     Dates: start: 20061114, end: 20061119
  2. TEGRETOL [Concomitant]
     Route: 048
     Dates: start: 20060803, end: 20061119
  3. SKENAN [Concomitant]
     Route: 048
     Dates: start: 20060907, end: 20061119
  4. COZAAR [Concomitant]
  5. DEPAKENE [Concomitant]
  6. ALDACTAZINE [Concomitant]
  7. AMLODIPINE [Concomitant]
  8. PREVISCAN [Concomitant]
  9. ESCITALOPRAM [Concomitant]

REACTIONS (3)
  - BRADYPNOEA [None]
  - DEPRESSED LEVEL OF CONSCIOUSNESS [None]
  - SOMNOLENCE [None]
